FAERS Safety Report 5964451-6 (Version None)
Quarter: 2008Q4

REPORT INFORMATION
  Report Type: 
  Country: None (occurrence: None)
  Receive Date: 20081124
  Receipt Date: 20081124
  Transmission Date: 20090506
  Serious: No
  Sender: FDA-Public Use
  Company Number: None

PATIENT
  Age: 84 Year
  Sex: Male

DRUGS (1)
  1. LISINOPRIL [Suspect]
     Indication: HYPERTENSION
     Dosage: 10MG MG EVERY DAY PO
     Route: 048
     Dates: start: 20071220, end: 20081029

REACTIONS (2)
  - COUGH [None]
  - WHEEZING [None]
